FAERS Safety Report 12751301 (Version 1)
Quarter: 2016Q3

REPORT INFORMATION
  Report Type: Spontaneous
  Country: US (occurrence: US)
  Receive Date: 20160915
  Receipt Date: 20160915
  Transmission Date: 20161109
  Serious: Yes (Hospitalization)
  Sender: FDA-Public Use
  Company Number: US-ASTRAZENECA-2016SE95965

PATIENT
  Sex: Male
  Weight: 83.9 kg

DRUGS (2)
  1. OXYGEN. [Concomitant]
     Active Substance: OXYGEN
     Dosage: 2 L/MIN
  2. TUDORZA PRESSAIR [Suspect]
     Active Substance: ACLIDINIUM BROMIDE
     Dosage: 400 MCG 1 PUFF TWICE PER DAY
     Route: 055

REACTIONS (4)
  - Dementia [Unknown]
  - Drug dose omission [Unknown]
  - Hypercapnia [Unknown]
  - Loss of consciousness [Unknown]
